FAERS Safety Report 13990554 (Version 1)
Quarter: 2017Q3

REPORT INFORMATION
  Report Type: Spontaneous
  Country: US (occurrence: US)
  Receive Date: 20170920
  Receipt Date: 20170920
  Transmission Date: 20171128
  Serious: No
  Sender: FDA-Public Use
  Company Number: US-BRISTOL-MYERS SQUIBB COMPANY-BMS-2017-084318

PATIENT
  Age: 18 Year
  Sex: Male

DRUGS (1)
  1. NIVOLUMAB [Suspect]
     Active Substance: NIVOLUMAB
     Indication: ASTROCYTOMA
     Dosage: 3 MG/KG, UNK
     Route: 065

REACTIONS (3)
  - Dermatitis [Recovering/Resolving]
  - Perivascular dermatitis [Recovering/Resolving]
  - Product use in unapproved indication [Unknown]
